FAERS Safety Report 5043955-7 (Version None)
Quarter: 2006Q2

REPORT INFORMATION
  Report Type: 
  Country: None (occurrence: None)
  Receive Date: 20060601
  Receipt Date: 20060404
  Transmission Date: 20061013
  Serious: No
  Sender: FDA-Public Use
  Company Number: US200604000720

PATIENT
  Age: 45 Year
  Sex: Male

DRUGS (5)
  1. CYMBALTA [Suspect]
     Indication: PAIN
     Dosage: SEE IMAGE
     Dates: start: 20060301
  2. CYMBALTA [Suspect]
  3. LOTREL [Concomitant]
  4. ZETIA [Concomitant]
  5. ACTOS [Concomitant]

REACTIONS (4)
  - BLISTER [None]
  - FEELING ABNORMAL [None]
  - SKIN ULCER [None]
  - SUICIDAL IDEATION [None]
